FAERS Safety Report 18996912 (Version 1)
Quarter: 2021Q1

REPORT INFORMATION
  Report Type: Spontaneous
  Country: US (occurrence: US)
  Receive Date: 20210310
  Receipt Date: 20210310
  Transmission Date: 20210420
  Serious: No
  Sender: FDA-Public Use
  Company Number: None

PATIENT
  Age: 79 Year
  Sex: Male

DRUGS (1)
  1. COSENTYX [Suspect]
     Active Substance: SECUKINUMAB
     Dosage: OTHER
     Route: 058
     Dates: start: 202003, end: 202103

REACTIONS (3)
  - Prostate cancer [None]
  - Lymphoma [None]
  - Treatment noncompliance [None]

NARRATIVE: CASE EVENT DATE: 20210310
